FAERS Safety Report 7029561-3 (Version None)
Quarter: 2010Q4

REPORT INFORMATION
  Report Type: 
  Country: None (occurrence: None)
  Receive Date: 20101005
  Receipt Date: 20100928
  Transmission Date: 20110411
  Serious: Yes (Death, Hospitalization, Other)
  Sender: FDA-Public Use
  Company Number: US-AMGEN-QUU432961

PATIENT
  Sex: Male
  Weight: 56.3 kg

DRUGS (11)
  1. NPLATE [Suspect]
     Indication: IDIOPATHIC THROMBOCYTOPENIC PURPURA
     Route: 058
     Dates: start: 20090710, end: 20090806
  2. METOPROLOL [Concomitant]
     Route: 048
  3. IMDUR [Concomitant]
     Route: 048
  4. VENOFER [Concomitant]
     Route: 042
  5. ZOLOFT [Concomitant]
     Route: 048
  6. PRILOSEC [Concomitant]
     Route: 048
  7. ARANESP [Concomitant]
     Indication: DIALYSIS
  8. COLACE [Concomitant]
     Route: 048
  9. EMLA [Concomitant]
     Route: 061
  10. COMPAZINE [Concomitant]
  11. PERCOCET [Concomitant]

REACTIONS (16)
  - AZOTAEMIA [None]
  - CARDIAC ARREST [None]
  - CEREBRAL HAEMORRHAGE [None]
  - CONFUSIONAL STATE [None]
  - DELUSION [None]
  - EPISTAXIS [None]
  - GENERAL PHYSICAL HEALTH DETERIORATION [None]
  - GRAND MAL CONVULSION [None]
  - LUNG CANCER METASTATIC [None]
  - NEPHROPATHY [None]
  - PERICARDIAL EFFUSION [None]
  - PLATELET COUNT DECREASED [None]
  - PLEURAL EFFUSION [None]
  - REFUSAL OF TREATMENT BY PATIENT [None]
  - UNRESPONSIVE TO STIMULI [None]
  - VITAMIN B12 DEFICIENCY [None]
